FAERS Safety Report 13359171 (Version 6)
Quarter: 2024Q2

REPORT INFORMATION
  Report Type: Report from Study
  Country: DE (occurrence: DE)
  Receive Date: 20170322
  Receipt Date: 20240627
  Transmission Date: 20240716
  Serious: Yes (Hospitalization)
  Sender: FDA-Public Use
  Company Number: DE-JNJFOC-20160821141

PATIENT
  Age: 13 Year
  Sex: Male
  Weight: 61.5 kg

DRUGS (3)
  1. REMICADE [Suspect]
     Active Substance: INFLIXIMAB
     Indication: Colitis ulcerative
     Route: 041
     Dates: start: 20151224, end: 20160323
  2. REMICADE [Suspect]
     Active Substance: INFLIXIMAB
     Route: 041
     Dates: start: 20160504, end: 20160707
  3. MESALAMINE [Concomitant]
     Active Substance: MESALAMINE

REACTIONS (2)
  - Cholangitis sclerosing [Not Recovered/Not Resolved]
  - Drug specific antibody [Recovered/Resolved]

NARRATIVE: CASE EVENT DATE: 20160619
